FAERS Safety Report 4905362-4 (Version None)
Quarter: 2006Q1

REPORT INFORMATION
  Report Type: 
  Country: None (occurrence: None)
  Receive Date: 20060208
  Receipt Date: 20060125
  Transmission Date: 20060701
  Serious: Yes (Other)
  Sender: FDA-Public Use
  Company Number: US-AVENTIS-200610947US

PATIENT
  Sex: Female
  Weight: 57.72 kg

DRUGS (2)
  1. KETEK [Suspect]
     Indication: SINUSITIS
     Route: 048
     Dates: start: 20060101
  2. LANTUS [Concomitant]
     Dosage: DOSE UNIT: UNITS

REACTIONS (2)
  - FATIGUE [None]
  - VISUAL FIELD DEFECT [None]
